FAERS Safety Report 15015089 (Version 1)
Quarter: 2018Q2

REPORT INFORMATION
  Report Type: Spontaneous
  Country: JP (occurrence: JP)
  Receive Date: 20180615
  Receipt Date: 20180615
  Transmission Date: 20180711
  Serious: Yes (Hospitalization, Other)
  Sender: FDA-Public Use
  Company Number: JP-ACCORD-068283

PATIENT
  Age: 74 Year
  Sex: Male

DRUGS (3)
  1. DOCETAXEL. [Suspect]
     Active Substance: DOCETAXEL
     Indication: OROPHARYNGEAL CANCER STAGE IV
     Dosage: ON DAY 1
  2. CISPLATIN. [Suspect]
     Active Substance: CISPLATIN
     Indication: OROPHARYNGEAL CANCER STAGE IV
     Dosage: ON DAY 1
  3. FLUOROURACIL. [Suspect]
     Active Substance: FLUOROURACIL
     Indication: OROPHARYNGEAL CANCER STAGE IV
     Dosage: FROM DAY 1 TO DAY 5

REACTIONS (4)
  - Colitis [Recovered/Resolved]
  - Febrile neutropenia [Unknown]
  - Intestinal ischaemia [Recovered/Resolved]
  - Septic shock [Recovered/Resolved]
